FAERS Safety Report 25773138 (Version 1)
Quarter: 2025Q3

REPORT INFORMATION
  Report Type: Spontaneous
  Country: EU (occurrence: EU)
  Receive Date: 20250908
  Receipt Date: 20250908
  Transmission Date: 20251021
  Serious: Yes (Other)
  Sender: MERCK SHARP & DOHME LLC
  Company Number: EU-009507513-2325148

PATIENT
  Age: 33 Year
  Sex: Female

DRUGS (6)
  1. PEMBROLIZUMAB [Suspect]
     Active Substance: PEMBROLIZUMAB
     Indication: Invasive breast carcinoma
     Route: 065
     Dates: start: 202409
  2. PEMBROLIZUMAB [Suspect]
     Active Substance: PEMBROLIZUMAB
     Indication: Invasive breast carcinoma
     Route: 065
     Dates: start: 202505
  3. ADRIAMYCIN [Suspect]
     Active Substance: DOXORUBICIN HYDROCHLORIDE
     Indication: Invasive breast carcinoma
     Route: 065
     Dates: start: 202409
  4. CYCLOPHOSPHAMIDE [Suspect]
     Active Substance: CYCLOPHOSPHAMIDE
     Indication: Invasive breast carcinoma
     Route: 065
     Dates: start: 202409
  5. PACLITAXEL [Suspect]
     Active Substance: PACLITAXEL
     Indication: Invasive breast carcinoma
     Route: 065
     Dates: start: 202409
  6. CARBOPLATIN [Suspect]
     Active Substance: CARBOPLATIN
     Indication: Invasive breast carcinoma
     Route: 065
     Dates: start: 202409

REACTIONS (3)
  - Hepatic cytolysis [Unknown]
  - Anaemia [Unknown]
  - Asthenia [Unknown]
